FAERS Safety Report 4515353-3 (Version None)
Quarter: 2004Q4

REPORT INFORMATION
  Report Type: 
  Country: None (occurrence: None)
  Receive Date: 20041201
  Receipt Date: 20030625
  Transmission Date: 20050328
  Serious: Yes (Hospitalization)
  Sender: FDA-Public Use
  Company Number: DK-ROCHE-340806

PATIENT
  Age: 55 Year
  Sex: Female

DRUGS (6)
  1. PEG-INTERFERON ALFA 2A (RO 25-8310) [Suspect]
     Indication: HEPATITIS C
     Route: 058
     Dates: start: 20030303, end: 20040126
  2. RIBAVIRIN [Suspect]
     Indication: HEPATITIS C
     Route: 048
     Dates: start: 20030303, end: 20040201
  3. DIURAL [Suspect]
     Indication: OEDEMA
     Route: 048
     Dates: start: 20030303
  4. CIPRAMIL [Suspect]
     Indication: DEPRESSION
     Route: 048
     Dates: start: 20030303
  5. STILNOCT [Suspect]
     Indication: INSOMNIA
     Route: 048
     Dates: start: 20031015
  6. ELTROXIN [Concomitant]
     Route: 048
     Dates: start: 20030628

REACTIONS (6)
  - CHROMATURIA [None]
  - DYSPHAGIA [None]
  - FAECES PALE [None]
  - PULMONARY FIBROSIS [None]
  - PYREXIA [None]
  - RASH [None]
